FAERS Safety Report 9789778 (Version 1)
Quarter: 2013Q4

REPORT INFORMATION
  Report Type: Spontaneous
  Country: US (occurrence: US)
  Receive Date: 20131231
  Receipt Date: 20131231
  Transmission Date: 20140711
  Serious: Yes (Other)
  Sender: FDA-Public Use
  Company Number: US-BAYER-2013-159305

PATIENT
  Age: 26 Year
  Sex: Female

DRUGS (2)
  1. YAZ [Suspect]
  2. HYDROCODONE W/APAP [Concomitant]
     Dosage: 7.5 MG/500 MG ONE T Q6H PRN (TABLET, EVERY 6 HOURS AS NEEDED)
     Route: 048
     Dates: start: 20090827

REACTIONS (2)
  - Cholecystitis chronic [None]
  - Biliary dyskinesia [None]
